FAERS Safety Report 7356748-2 (Version None)
Quarter: 2011Q1

REPORT INFORMATION
  Report Type: 
  Country: None (occurrence: None)
  Receive Date: 20110316
  Receipt Date: 20110308
  Transmission Date: 20110831
  Serious: Yes (Hospitalization)
  Sender: FDA-Public Use
  Company Number: IT-MERCK-1102ITA00024

PATIENT
  Age: 55 Year
  Sex: Female

DRUGS (2)
  1. GLIMEPIRIDE [Concomitant]
     Route: 065
  2. JANUVIA [Suspect]
     Indication: TYPE 2 DIABETES MELLITUS
     Route: 048
     Dates: start: 20090914, end: 20100801

REACTIONS (2)
  - GRAVITATIONAL OEDEMA [None]
  - ARTHRALGIA [None]
